FAERS Safety Report 8118363-2 (Version None)
Quarter: 2011Q4

REPORT INFORMATION
  Report Type: 
  Country: None (occurrence: None)
  Receive Date: 20111227
  Receipt Date: 20111118
  Transmission Date: 20120403
  Serious: No
  Sender: FDA-Public Use
  Company Number: PHEH2011US06758

PATIENT
  Age: 60 Year
  Sex: Female
  Weight: 65.8 kg

DRUGS (1)
  1. GILENYA [Suspect]
     Indication: MULTIPLE SCLEROSIS
     Dosage: 0.5 MG, QD, ORAL
     Route: 048
     Dates: start: 20111011

REACTIONS (6)
  - INSOMNIA [None]
  - PARAESTHESIA [None]
  - FAECES PALE [None]
  - CONSTIPATION [None]
  - FLUSHING [None]
  - SENSORY DISTURBANCE [None]
